FAERS Safety Report 10524797 (Version 2)
Quarter: 2014Q4

REPORT INFORMATION
  Report Type: Spontaneous
  Country: US (occurrence: US)
  Receive Date: 20141017
  Receipt Date: 20141017
  Transmission Date: 20150528
  Serious: Yes (Hospitalization)
  Sender: FDA-Public Use
  Company Number: US-CUBIST PHARMACEUTICALS, INC.-2014CBST001398

PATIENT

DRUGS (2)
  1. CUBICIN [Suspect]
     Active Substance: DAPTOMYCIN
     Indication: PRODUCT USED FOR UNKNOWN INDICATION
     Dosage: 11.4 MG/KG, QD
     Route: 065
     Dates: start: 20140815, end: 20140829
  2. CUBICIN [Suspect]
     Active Substance: DAPTOMYCIN
     Dosage: 940 MG, QD
     Route: 065
     Dates: start: 20140815, end: 20140829

REACTIONS (2)
  - Hospitalisation [Unknown]
  - Off label use [Unknown]
